FAERS Safety Report 5011652-X (Version None)
Quarter: 2006Q2

REPORT INFORMATION
  Report Type: 
  Country: None (occurrence: None)
  Receive Date: 20060526
  Receipt Date: 20060518
  Transmission Date: 20061013
  Serious: Yes (Hospitalization)
  Sender: FDA-Public Use
  Company Number: 2006UW09703

PATIENT
  Age: 43 Year
  Sex: Female

DRUGS (5)
  1. NEXIUM [Suspect]
     Indication: HIATUS HERNIA
     Route: 048
     Dates: start: 20020301, end: 20020401
  2. NEXIUM [Suspect]
     Route: 048
  3. MOTILIUM [Concomitant]
     Route: 048
     Dates: start: 20060101
  4. ATIVAN [Concomitant]
     Route: 050
  5. ZANTAC [Concomitant]

REACTIONS (5)
  - CHEST DISCOMFORT [None]
  - GASTROINTESTINAL DISORDER [None]
  - PHARYNGOLARYNGEAL PAIN [None]
  - PRURITUS [None]
  - RASH [None]
